FAERS Safety Report 6898090-X (Version None)
Quarter: 2010Q3

REPORT INFORMATION
  Report Type: 
  Country: None (occurrence: None)
  Receive Date: 20100802
  Receipt Date: 20070830
  Transmission Date: 20110219
  Serious: No
  Sender: FDA-Public Use
  Company Number: US-PFIZER INC-2007074685

PATIENT
  Age: 44 Year
  Sex: Female

DRUGS (7)
  1. LYRICA [Suspect]
     Indication: FIBROMYALGIA
     Dates: start: 20060426, end: 20060501
  2. SYNTHROID [Concomitant]
  3. TOPAMAX [Concomitant]
  4. ALL OTHER THERAPEUTIC PRODUCTS [Concomitant]
  5. LORAZEPAM [Concomitant]
  6. CYMBALTA [Concomitant]
  7. MIRAPEX [Concomitant]

REACTIONS (1)
  - HYPERSOMNIA [None]
